FAERS Safety Report 18335488 (Version 1)
Quarter: 2020Q4

REPORT INFORMATION
  Report Type: Spontaneous
  Country: CN (occurrence: CN)
  Receive Date: 20201001
  Receipt Date: 20201001
  Transmission Date: 20210113
  Serious: Yes (Hospitalization)
  Sender: FDA-Public Use
  Company Number: CN-FRESENIUS KABI-FK202009853

PATIENT
  Age: 56 Year
  Sex: Female

DRUGS (3)
  1. CEFOXITIN SODIUM [Suspect]
     Active Substance: CEFOXITIN SODIUM
     Indication: INFECTION
     Dosage: 2 G ONCE DAILY
     Route: 041
     Dates: start: 20200831, end: 20200831
  2. DEZOCINE [Suspect]
     Active Substance: DEZOCINE
     Indication: ANALGESIC THERAPY
     Dosage: 2 ML ONCE DAILY
     Route: 041
     Dates: start: 20200831, end: 20200831
  3. VOLUVEN [Suspect]
     Active Substance: HYDROXYETHYL STARCH 130/0.4
     Indication: FLUID REPLACEMENT
     Dosage: 500 ML ONCE DAILY
     Route: 041
     Dates: start: 20200831, end: 20200831

REACTIONS (3)
  - Rash [Recovering/Resolving]
  - Swelling face [Recovering/Resolving]
  - Erythema [Recovering/Resolving]

NARRATIVE: CASE EVENT DATE: 20200831
